FAERS Safety Report 9103176 (Version 1)
Quarter: 2013Q1

REPORT INFORMATION
  Report Type: Spontaneous
  Country: IT (occurrence: None)
  Receive Date: 20130125
  Receipt Date: 20130125
  Transmission Date: 20140127
  Serious: Yes (Other)
  Sender: FDA-Public Use
  Company Number: CIP-2013-00011

PATIENT
  Sex: 0

DRUGS (3)
  1. IRINOTECAN [Suspect]
     Dosage: (40 MG/M2,DAYS 1,8, AND 15),UNKNOWN
     Dates: start: 20130110, end: 20130110
  2. CISPLATIN [Suspect]
     Dosage: (60 MG/M2,DAY 1),UNKNOWN
  3. THORACIC RADIOTHERAPY(OTHER CHEMOTHERAPEUTICS) [Suspect]
     Dosage: 2 GY PER FRACTION ONCE DAILY WITH A SPLIT SCHEDULE (5 DAYS/WEEK FROM DAY 2 OF EACH CHEMO CYC),LINEAR ACCELERATOR

REACTIONS (3)
  - Diarrhoea haemorrhagic [None]
  - Ileus [None]
  - Gastrointestinal ulcer [None]
